FAERS Safety Report 7067645-4 (Version None)
Quarter: 2010Q4

REPORT INFORMATION
  Report Type: 
  Country: None (occurrence: None)
  Receive Date: 20101020
  Receipt Date: 20101007
  Transmission Date: 20110411
  Serious: Yes (Death)
  Sender: FDA-Public Use
  Company Number: JPI-P-004419

PATIENT
  Age: 48 Year
  Sex: Male

DRUGS (5)
  1. XYREM [Suspect]
     Indication: INSOMNIA
     Dosage: 9 GM (4.5 GM, 2 IN 1 D), ORAL
     Route: 048
     Dates: start: 20080606
  2. XYREM [Suspect]
     Indication: NARCOLEPSY
     Dosage: 9 GM (4.5 GM, 2 IN 1 D), ORAL
     Route: 048
     Dates: start: 20080606
  3. UNSPECIFIED MEDICATIONS [Concomitant]
  4. ESZOPICLONE [Concomitant]
  5. UNSPECIFIED NUTRITIONAL SUPPORT [Concomitant]

REACTIONS (3)
  - ACCIDENTAL OVERDOSE [None]
  - HALLUCINATION [None]
  - RESPIRATORY FAILURE [None]
